FAERS Safety Report 6338697-1 (Version None)
Quarter: 2009Q3

REPORT INFORMATION
  Report Type: 
  Country: None (occurrence: None)
  Receive Date: 20090831
  Receipt Date: 20090717
  Transmission Date: 20100115
  Serious: Yes (Other)
  Sender: FDA-Public Use
  Company Number: MC200900255

PATIENT

DRUGS (1)
  1. CLEVIPREX [Suspect]
     Dates: start: 20090701, end: 20090701

REACTIONS (1)
  - HEART RATE INCREASED [None]
